FAERS Safety Report 6283160-X (Version None)
Quarter: 2009Q3

REPORT INFORMATION
  Report Type: 
  Country: None (occurrence: None)
  Receive Date: 20090724
  Receipt Date: 20090715
  Transmission Date: 20100115
  Serious: Yes (Hospitalization, Other)
  Sender: FDA-Public Use
  Company Number: B0579290A

PATIENT
  Sex: Female

DRUGS (3)
  1. CERVARIX [Suspect]
     Indication: PROPHYLAXIS
     Dosage: 1INJ SINGLE DOSE
     Route: 030
     Dates: start: 20081216, end: 20081216
  2. AMOXICILLIN [Suspect]
     Dosage: 250MG UNKNOWN
     Route: 048
     Dates: start: 20090107, end: 20090314
  3. CERVARIX [Concomitant]
     Dosage: 1INJ SINGLE DOSE
     Route: 030
     Dates: start: 20081114, end: 20081114

REACTIONS (11)
  - BRONCHOSPASM [None]
  - DERMATITIS ALLERGIC [None]
  - FACE OEDEMA [None]
  - FEELING ABNORMAL [None]
  - JOINT SWELLING [None]
  - LIP SWELLING [None]
  - LOWER RESPIRATORY TRACT INFECTION [None]
  - RASH [None]
  - SWELLING FACE [None]
  - URTICARIA [None]
  - WHEEZING [None]
